FAERS Safety Report 9755749 (Version 1)
Quarter: 2013Q4

REPORT INFORMATION
  Report Type: Spontaneous
  Country: US (occurrence: US)
  Receive Date: 20131213
  Receipt Date: 20131213
  Transmission Date: 20140711
  Serious: No
  Sender: FDA-Public Use
  Company Number: US-GLAXOSMITHKLINE-A1023382A

PATIENT
  Age: 58 Year
  Sex: Female

DRUGS (7)
  1. NICODERM CQ CLEAR 21MG [Suspect]
     Indication: EX-TOBACCO USER
  2. NICODERM CQ CLEAR 21MG [Suspect]
  3. OLANZAPINE [Concomitant]
  4. AMLODIPINE BESYLATE [Concomitant]
  5. HYDROCHLOROTHIAZIDE [Concomitant]
  6. CERTA VITE [Concomitant]
  7. VITAMIN B12 [Concomitant]

REACTIONS (5)
  - Application site rash [Unknown]
  - Hypersensitivity [Unknown]
  - Cough [Not Recovered/Not Resolved]
  - Retching [Not Recovered/Not Resolved]
  - Productive cough [Recovered/Resolved]
